FAERS Safety Report 6010956-1 (Version None)
Quarter: 2008Q4

REPORT INFORMATION
  Report Type: 
  Country: None (occurrence: None)
  Receive Date: 20081218
  Receipt Date: 20081215
  Transmission Date: 20090506
  Serious: Yes (Other)
  Sender: FDA-Public Use
  Company Number: A0760750A

PATIENT
  Age: 79 Year
  Sex: Male

DRUGS (5)
  1. ZOFRAN [Suspect]
     Indication: POSTOPERATIVE CARE
     Route: 042
     Dates: start: 20081207, end: 20081211
  2. CEFTRIAXONE [Concomitant]
  3. DOBUTAMINE HCL [Concomitant]
  4. OMEPRAZOLE [Concomitant]
  5. METRONIDAZOLE [Concomitant]

REACTIONS (1)
  - HALLUCINATION [None]
